FAERS Safety Report 24073888 (Version 1)
Quarter: 2024Q3

REPORT INFORMATION
  Report Type: Spontaneous
  Country: US (occurrence: US)
  Receive Date: 20240710
  Receipt Date: 20240710
  Transmission Date: 20241017
  Serious: No
  Sender: PFIZER
  Company Number: US-PFIZER INC-PV202400089622

PATIENT
  Age: 61 Year
  Sex: Male

DRUGS (1)
  1. NURTEC ODT [Suspect]
     Active Substance: RIMEGEPANT SULFATE
     Dosage: DISSOLVE ONE ORAL DISINTEGRATING TABLET IN MOUTH EVERY OTHER DAY
     Route: 048

REACTIONS (1)
  - Vertigo [Not Recovered/Not Resolved]
